FAERS Safety Report 4590285-3 (Version None)
Quarter: 2005Q1

REPORT INFORMATION
  Report Type: 
  Country: None (occurrence: None)
  Receive Date: 20050217
  Receipt Date: 20050208
  Transmission Date: 20050727
  Serious: Yes (Hospitalization)
  Sender: FDA-Public Use
  Company Number: A02200500325

PATIENT
  Age: 70 Year
  Sex: Male

DRUGS (10)
  1. PLAVIX [Suspect]
     Dosage: 75 MG OD, ORAL
     Route: 048
     Dates: start: 20040815, end: 20041217
  2. ZOCOR [Suspect]
     Dosage: SEE IMAGE
     Route: 048
     Dates: start: 19940601, end: 20041101
  3. ZOCOR [Suspect]
     Dosage: SEE IMAGE
     Route: 048
     Dates: start: 20041101, end: 20041216
  4. ZOCOR [Suspect]
     Dosage: SEE IMAGE
     Route: 048
     Dates: start: 20041217, end: 20041222
  5. KARDEGIC (ACETYLSALICYLATE LYSINE) [Concomitant]
  6. BISOPROLOL FUMARATE [Concomitant]
  7. LASILIX (FUROSEMIDE) [Concomitant]
  8. RAMIPRIL [Concomitant]
  9. OXAZEPAM [Concomitant]
  10. LORAZEPAM [Concomitant]

REACTIONS (8)
  - ASTHENIA [None]
  - DEPRESSION [None]
  - GOITRE [None]
  - HEADACHE [None]
  - HOT FLUSH [None]
  - ORTHOSTATIC HYPOTENSION [None]
  - PROSTATIC DISORDER [None]
  - WEIGHT DECREASED [None]
